FAERS Safety Report 21456394 (Version 1)
Quarter: 2022Q4

REPORT INFORMATION
  Report Type: Report from Study
  Country: US (occurrence: US)
  Receive Date: 20221014
  Receipt Date: 20221014
  Transmission Date: 20230113
  Serious: No
  Sender: FDA-Public Use
  Company Number: US-ABBVIE-4144942

PATIENT
  Sex: Female

DRUGS (4)
  1. HUMIRA [Suspect]
     Active Substance: ADALIMUMAB
     Indication: Psoriatic arthropathy
     Dosage: HUMIRA CITRATE FREE
     Route: 058
  2. Moderna [Concomitant]
     Indication: COVID-19 immunisation
     Dosage: FIRST DOSE- FREQUENCY- ONE IN ONCE
     Route: 030
     Dates: start: 20210331, end: 20210331
  3. Moderna [Concomitant]
     Indication: COVID-19 immunisation
     Dosage: SECOND DOSE- FREQUENCY- ONE IN ONCE
     Route: 030
     Dates: start: 20210428, end: 20210428
  4. Moderna [Concomitant]
     Indication: COVID-19 immunisation
     Dosage: BOOSTER- THIRD DOSE- FREQUENCY- ONE IN ONCE
     Route: 030
     Dates: start: 20220125, end: 20220125

REACTIONS (5)
  - Plantar fasciitis [Unknown]
  - Neck pain [Recovering/Resolving]
  - Arthralgia [Recovering/Resolving]
  - Pain in extremity [Recovering/Resolving]
  - Muscle spasms [Unknown]
